FAERS Safety Report 9113683 (Version 1)
Quarter: 2013Q1

REPORT INFORMATION
  Report Type: Spontaneous
  Country: US (occurrence: US)
  Receive Date: 20130201
  Receipt Date: 20130201
  Transmission Date: 20140127
  Serious: Yes (Other)
  Sender: FDA-Public Use
  Company Number: US-PFIZER INC-2013040228

PATIENT
  Age: 58 Year
  Sex: Female
  Weight: 90.7 kg

DRUGS (2)
  1. LYRICA [Suspect]
     Indication: FIBROMYALGIA
     Dosage: UNK, 2X/DAY
     Route: 048
     Dates: start: 2012
  2. LYRICA [Suspect]
     Dosage: UNK, AS NEEDED
     Route: 048

REACTIONS (2)
  - Intentional drug misuse [Unknown]
  - Gait disturbance [Unknown]
